FAERS Safety Report 18177699 (Version 3)
Quarter: 2021Q2

REPORT INFORMATION
  Report Type: Report from Study
  Country: FR (occurrence: FR)
  Receive Date: 20200820
  Receipt Date: 20210614
  Transmission Date: 20210717
  Serious: Yes (Death, Hospitalization, Other)
  Sender: FDA-Public Use
  Company Number: FR-CELGENEUS-FRA-20200803399

PATIENT
  Age: 78 Year
  Sex: Male
  Weight: 83 kg

DRUGS (11)
  1. CELIPROLOL [Concomitant]
     Active Substance: CELIPROLOL
     Indication: HYPERTENSION
     Route: 048
  2. COVERAM 10/5 [Concomitant]
     Indication: HYPERTENSION
     Dosage: 1 TABLET
     Route: 048
  3. TIORFAN [Concomitant]
     Active Substance: RACECADOTRIL
     Indication: DIARRHOEA
     Route: 048
     Dates: start: 20200316, end: 20200319
  4. AG?221 [Suspect]
     Active Substance: ENASIDENIB
     Indication: MYELODYSPLASTIC SYNDROME
     Route: 048
     Dates: start: 20200129, end: 20200811
  5. KARDEGIC [Concomitant]
     Active Substance: ASPIRIN DL-LYSINE
     Indication: PROPHYLAXIS
     Route: 048
  6. EFFERALGAN CODEINE [Concomitant]
     Active Substance: ACETAMINOPHEN\CODEINE PHOSPHATE
     Indication: SCIATICA
     Route: 048
     Dates: start: 20200301, end: 20200301
  7. DIFFU K [Concomitant]
     Active Substance: POTASSIUM CHLORIDE
     Indication: HYPOKALAEMIA
     Route: 048
     Dates: start: 20200319
  8. TAHOR [Concomitant]
     Active Substance: ATORVASTATIN CALCIUM
     Indication: HYPERCHOLESTEROLAEMIA
     Route: 048
  9. MORPHINE [Concomitant]
     Active Substance: MORPHINE
     Indication: SUPPORTIVE CARE
     Route: 041
  10. ESOMEPRAZOLE. [Concomitant]
     Active Substance: ESOMEPRAZOLE MAGNESIUM
     Indication: PROPHYLAXIS
     Route: 048
  11. HYPNOVEL [Concomitant]
     Active Substance: MIDAZOLAM
     Indication: SUPPORTIVE CARE
     Route: 041

REACTIONS (3)
  - Tumour lysis syndrome [Fatal]
  - Transformation to acute myeloid leukaemia [Fatal]
  - Hyperleukocytosis [Fatal]

NARRATIVE: CASE EVENT DATE: 20200811
